FAERS Safety Report 9633218 (Version 1)
Quarter: 2013Q4

REPORT INFORMATION
  Report Type: Spontaneous
  Country: US (occurrence: None)
  Receive Date: 20131018
  Receipt Date: 20131018
  Transmission Date: 20140711
  Serious: Yes (Hospitalization)
  Sender: FDA-Public Use
  Company Number: None

PATIENT
  Age: 80 Year
  Sex: Female
  Weight: 90 kg

DRUGS (1)
  1. DAPTOMYCIN [Suspect]
     Indication: CELLULITIS
     Route: 042
     Dates: start: 20130820, end: 20130824

REACTIONS (1)
  - Erythema multiforme [None]
